FAERS Safety Report 9701394 (Version 1)
Quarter: 2013Q4

REPORT INFORMATION
  Report Type: Spontaneous
  Country: US (occurrence: US)
  Receive Date: 20131121
  Receipt Date: 20131121
  Transmission Date: 20140711
  Serious: No
  Sender: FDA-Public Use
  Company Number: US-GILEAD-2008-0016788

PATIENT
  Age: 47 Year
  Sex: Female

DRUGS (12)
  1. LETAIRIS [Suspect]
     Indication: PULMONARY ARTERIAL HYPERTENSION
     Route: 048
     Dates: start: 200710
  2. CIALIS [Concomitant]
  3. SPIRONOLACTONE [Concomitant]
  4. DIGOXIN [Concomitant]
  5. METFORMIN [Concomitant]
  6. AMARYL [Concomitant]
  7. LASIX [Concomitant]
  8. JANUVIA [Concomitant]
  9. WARFARIN [Concomitant]
  10. ZANTAC [Concomitant]
  11. NEXIUM [Concomitant]
  12. K-CLOR [Concomitant]

REACTIONS (1)
  - Blood glucose abnormal [Recovered/Resolved]
